FAERS Safety Report 4699147-4 (Version None)
Quarter: 2005Q2

REPORT INFORMATION
  Report Type: 
  Country: None (occurrence: None)
  Receive Date: 20050623
  Receipt Date: 20050623
  Transmission Date: 20051028
  Serious: Yes (Death)
  Sender: FDA-Public Use
  Company Number: None

PATIENT
  Sex: Female
  Weight: 58.7 kg

DRUGS (5)
  1. DOXORUBICIN        SEE TREATMENT SUMMARY [Suspect]
     Indication: BONE SARCOMA
     Dosage: VARIOUS       INTRAVENOU
     Route: 042
     Dates: start: 20041204, end: 20050606
  2. CISPLATIN [Suspect]
     Indication: BONE SARCOMA
     Dosage: VARIOUS INTRVENOU
     Route: 042
     Dates: start: 20041204, end: 20050606
  3. DEXRAZOXANE [Suspect]
     Indication: BONE SARCOMA
     Dosage: VARIOUS INTRVENOU
     Route: 042
     Dates: start: 20041204, end: 20050606
  4. METHOTREXATE [Suspect]
     Indication: BONE SARCOMA
     Dosage: VARIOUS INTRVENOU
     Route: 042
     Dates: start: 20041204, end: 20050606
  5. ETOPOSIDE [Suspect]
     Indication: BONE SARCOMA
     Dosage: VARIOUS INTRVENOU
     Route: 042
     Dates: start: 20041204, end: 20050606

REACTIONS (2)
  - LOSS OF CONSCIOUSNESS [None]
  - SEPSIS [None]
